FAERS Safety Report 25980862 (Version 3)
Quarter: 2025Q4

REPORT INFORMATION
  Report Type: Spontaneous
  Country: US (occurrence: US)
  Receive Date: 20251030
  Receipt Date: 20251202
  Transmission Date: 20260118
  Serious: Yes (Hospitalization)
  Sender: ROCHE
  Company Number: US-ROCHE-10000418103

PATIENT
  Age: 33 Year
  Sex: Female

DRUGS (10)
  1. XOLAIR PFS [Suspect]
     Active Substance: OMALIZUMAB
     Indication: Urticaria
     Dosage: STRENGTH: 150MG/ML
     Route: 058
     Dates: start: 202202
  2. XOLAIR PFS [Suspect]
     Active Substance: OMALIZUMAB
  3. EPINEPHRINE [Concomitant]
     Active Substance: EPINEPHRINE
  4. SOD CHLOR POS STERILE F [Concomitant]
  5. HEPARIN L/F SYR [Concomitant]
     Dosage: 3ML/SYR
  6. STERILE WATER SDV [Concomitant]
  7. CINRYZE SDV [Concomitant]
  8. TERIPARATIDE [Concomitant]
     Active Substance: TERIPARATIDE
  9. TAKHZYRO PFS [Concomitant]
  10. DUPIXENT [Concomitant]
     Active Substance: DUPILUMAB
     Dosage: ON DAY 1, THEN 1 SYRINGE EVERY OTHER WEEK
     Route: 058

REACTIONS (4)
  - Off label use [Unknown]
  - Urticaria [Unknown]
  - Cerebrospinal fluid leakage [Unknown]
  - Hereditary angioedema [Unknown]

NARRATIVE: CASE EVENT DATE: 20251112
